FAERS Safety Report 17414357 (Version 2)
Quarter: 2022Q1

REPORT INFORMATION
  Report Type: Report from Study
  Country: US (occurrence: US)
  Receive Date: 20200213
  Receipt Date: 20220127
  Transmission Date: 20220424
  Serious: Yes (Death)
  Sender: FDA-Public Use
  Company Number: US-BEH-2020113072

PATIENT
  Age: 16 Year
  Sex: Female

DRUGS (1)
  1. HAEMATE P [Suspect]
     Active Substance: ANTIHEMOPHILIC FACTOR HUMAN
     Indication: Von Willebrand^s disease
     Dosage: UNK
     Route: 042
     Dates: start: 20200101, end: 20200101

REACTIONS (1)
  - Death [Fatal]

NARRATIVE: CASE EVENT DATE: 20200123
